FAERS Safety Report 24147740 (Version 1)
Quarter: 2024Q3

REPORT INFORMATION
  Report Type: Spontaneous
  Country: FR (occurrence: FR)
  Receive Date: 20240729
  Receipt Date: 20240729
  Transmission Date: 20241017
  Serious: Yes (Other)
  Sender: FRESENIUS KABI
  Company Number: None

PATIENT
  Age: 67 Year
  Sex: Female
  Weight: 74 kg

DRUGS (8)
  1. PEMETREXED [Suspect]
     Active Substance: PEMETREXED
     Indication: Bronchial carcinoma
     Route: 042
     Dates: start: 20240510, end: 20240510
  2. ONDANSETRON [Suspect]
     Active Substance: ONDANSETRON
     Indication: Prophylaxis of nausea and vomiting
     Route: 042
     Dates: start: 20240510, end: 20240510
  3. METHYLPREDNISOLONE [Suspect]
     Active Substance: METHYLPREDNISOLONE
     Indication: Prophylaxis of nausea and vomiting
     Route: 042
     Dates: start: 20240510, end: 20240510
  4. CYANOCOBALAMIN [Suspect]
     Active Substance: CYANOCOBALAMIN
     Indication: Chemotherapy side effect prophylaxis
     Route: 042
     Dates: start: 20240510, end: 20240510
  5. FOLIC ACID [Suspect]
     Active Substance: FOLIC ACID
     Indication: Chemotherapy side effect prophylaxis
     Route: 042
     Dates: start: 20240510, end: 20240510
  6. OPDIVO [Suspect]
     Active Substance: NIVOLUMAB
     Indication: Bronchial carcinoma
     Route: 042
     Dates: start: 20240510, end: 20240510
  7. CARBOPLATIN [Suspect]
     Active Substance: CARBOPLATIN
     Indication: Bronchial carcinoma
     Route: 042
     Dates: start: 20240510, end: 20240510
  8. FLUTICASONE FUROATE\VILANTEROL TRIFENATATE [Concomitant]
     Active Substance: FLUTICASONE FUROATE\VILANTEROL TRIFENATATE
     Indication: Product used for unknown indication

REACTIONS (1)
  - Dizziness [Recovered/Resolved]

NARRATIVE: CASE EVENT DATE: 20240511
